FAERS Safety Report 4471106-6 (Version None)
Quarter: 2004Q4

REPORT INFORMATION
  Report Type: 
  Country: None (occurrence: None)
  Receive Date: 20041011
  Receipt Date: 20041001
  Transmission Date: 20050328
  Serious: Yes (Other)
  Sender: FDA-Public Use
  Company Number: PHHO2004JP13916

PATIENT
  Age: 71 Year
  Sex: Male
  Weight: 60 kg

DRUGS (9)
  1. DIOVAN [Suspect]
     Dosage: 80 MG, QD
     Route: 048
     Dates: start: 20030430
  2. GLYBURIDE [Concomitant]
     Indication: DIABETES MELLITUS
  3. 8-HOUR BAYER [Concomitant]
     Indication: ANGINA PECTORIS
  4. CARVEDILOL [Concomitant]
     Indication: ANGINA PECTORIS
  5. LIPOVAS [Concomitant]
     Indication: HYPERCHOLESTEROLAEMIA
  6. GASTER D [Concomitant]
     Indication: ABDOMINAL PAIN UPPER
  7. BASEN [Concomitant]
     Indication: DIABETES MELLITUS
  8. FRANDOL [Concomitant]
     Indication: ANGINA PECTORIS
  9. LENDORMIN [Concomitant]
     Indication: INSOMNIA

REACTIONS (2)
  - ATHEROSCLEROSIS OBLITERANS [None]
  - ENDARTERECTOMY [None]
